FAERS Safety Report 10223902 (Version 2)
Quarter: 2014Q2

REPORT INFORMATION
  Report Type: Spontaneous
  Country: US (occurrence: US)
  Receive Date: 20140609
  Receipt Date: 20140609
  Transmission Date: 20141212
  Serious: No
  Sender: FDA-Public Use
  Company Number: US-DRREDDYS-USA/USA/14/0039162

PATIENT
  Age: 76 Year
  Sex: Female

DRUGS (5)
  1. MUCINEX ALLERGY (FEXOFENADINE) [Suspect]
     Indication: RHINORRHOEA
     Dates: start: 20140318
  2. MUCINEX ALLERGY (FEXOFENADINE) [Suspect]
     Indication: EYE PRURITUS
  3. LISINOPRIL [Concomitant]
     Indication: HYPERTENSION
     Route: 065
  4. SIMVASTATIN 10 MG [Concomitant]
     Indication: BLOOD CHOLESTEROL INCREASED
     Route: 065
  5. GABAPENTIN [Concomitant]
     Indication: PRURITUS
     Route: 065

REACTIONS (2)
  - Drug ineffective [Unknown]
  - Product quality issue [Unknown]
